FAERS Safety Report 12467426 (Version 1)
Quarter: 2016Q2

REPORT INFORMATION
  Report Type: Spontaneous
  Country: US (occurrence: US)
  Receive Date: 20160615
  Receipt Date: 20160615
  Transmission Date: 20160815
  Serious: No
  Sender: FDA-Public Use
  Company Number: US-TEVA-592636USA

PATIENT
  Age: 84 Year
  Sex: Female
  Weight: 56.3 kg

DRUGS (4)
  1. CIPROFLOXACIN. [Suspect]
     Active Substance: CIPROFLOXACIN
     Indication: SINUSITIS
     Dates: start: 20150218, end: 20150220
  2. PROBIOTIC [Concomitant]
     Active Substance: PROBIOTICS NOS
     Route: 065
  3. MYTHYLPRED [Concomitant]
     Route: 065
  4. FAMOTIDINE. [Suspect]
     Active Substance: FAMOTIDINE
     Route: 065

REACTIONS (13)
  - Fatigue [Unknown]
  - Arthralgia [Recovered/Resolved]
  - Nausea [Unknown]
  - Arthralgia [Not Recovered/Not Resolved]
  - Asthenia [Unknown]
  - Pain in extremity [Recovered/Resolved]
  - Pain [Recovered/Resolved]
  - Fatigue [Not Recovered/Not Resolved]
  - Back pain [Recovered/Resolved]
  - Pain [Not Recovered/Not Resolved]
  - Palpitations [Unknown]
  - Dysuria [Unknown]
  - Movement disorder [Unknown]

NARRATIVE: CASE EVENT DATE: 201502
